FAERS Safety Report 20855713 (Version 1)
Quarter: 2022Q2

REPORT INFORMATION
  Report Type: Spontaneous
  Country: US (occurrence: US)
  Receive Date: 20220520
  Receipt Date: 20220520
  Transmission Date: 20220720
  Serious: Yes (Other)
  Sender: FDA-Public Use
  Company Number: US-MYLANLABS-2022M1037415

PATIENT
  Age: 35 Year
  Sex: Female
  Weight: 70 kg

DRUGS (8)
  1. ROCURONIUM [Suspect]
     Active Substance: ROCURONIUM BROMIDE
     Indication: General anaesthesia
     Dosage: 100 MILLIGRAM
     Route: 042
  2. ROCURONIUM [Suspect]
     Active Substance: ROCURONIUM BROMIDE
     Dosage: UNK
     Route: 040
  3. LIDOCAINE [Suspect]
     Active Substance: LIDOCAINE
     Indication: General anaesthesia
     Dosage: 100 MILLIGRAM
     Route: 042
  4. FENTANYL [Suspect]
     Active Substance: FENTANYL
     Indication: General anaesthesia
     Dosage: 100 MICROGRAM
     Route: 042
  5. FENTANYL [Suspect]
     Active Substance: FENTANYL
     Dosage: UNK
     Route: 040
  6. PROPOFOL [Suspect]
     Active Substance: PROPOFOL
     Indication: General anaesthesia
     Dosage: 150 MILLIGRAM
     Route: 042
  7. SEVOFLURANE [Suspect]
     Active Substance: SEVOFLURANE
     Indication: Anaesthesia
     Dosage: UNK
     Route: 065
  8. ROPIVACAINE [Suspect]
     Active Substance: ROPIVACAINE
     Indication: Transversus abdominis plane block
     Dosage: 60 MILLILITER
     Route: 065

REACTIONS (1)
  - Procedural hypotension [Recovered/Resolved]
